FAERS Safety Report 8869052 (Version 1)
Quarter: 2012Q4

REPORT INFORMATION
  Report Type: 
  Country: US (occurrence: US)
  Receive Date: 20121027
  Receipt Date: 20121027
  Transmission Date: 20130627
  Serious: No
  Sender: FDA-Public Use
  Company Number: US-009507513-1209USA000135

PATIENT
  Sex: Female

DRUGS (3)
  1. PEGINTRON [Suspect]
     Indication: HEPATITIS C
     Dosage: 120 Microgram, UNK
     Route: 058
     Dates: start: 20120525
  2. TELAPREVIR [Suspect]
     Indication: HEPATITIS C
     Dosage: 750 mg, tid
     Route: 048
  3. RIBASPHERE [Suspect]
     Indication: HEPATITIS C
     Dosage: Dose: 200 mg in AM, 400 mg in PM
     Route: 048

REACTIONS (5)
  - Anorectal discomfort [Unknown]
  - Haemorrhoids [Unknown]
  - Vomiting [Unknown]
  - Nausea [Unknown]
  - Pruritus [Unknown]
